FAERS Safety Report 6871650-8 (Version None)
Quarter: 2010Q3

REPORT INFORMATION
  Report Type: 
  Country: None (occurrence: None)
  Receive Date: 20100723
  Receipt Date: 20100719
  Transmission Date: 20110219
  Serious: Yes (Death, Other)
  Sender: FDA-Public Use
  Company Number: GB-BRISTOL-MYERS SQUIBB COMPANY-15113715

PATIENT
  Age: 81 Year
  Sex: Male

DRUGS (1)
  1. CARBIDOPA + LEVODOPA [Suspect]
     Indication: PARKINSON'S DISEASE
     Route: 048

REACTIONS (2)
  - APHAGIA [None]
  - DEMENTIA [None]
